FAERS Safety Report 10703772 (Version 3)
Quarter: 2015Q1

REPORT INFORMATION
  Report Type: Spontaneous
  Country: US (occurrence: US)
  Receive Date: 20150112
  Receipt Date: 20150330
  Transmission Date: 20150721
  Serious: No
  Sender: FDA-Public Use
  Company Number: US-PFIZER INC-2015006276

PATIENT
  Age: 72 Year
  Sex: Male
  Weight: 93 kg

DRUGS (12)
  1. IMODIUM [Concomitant]
     Active Substance: LOPERAMIDE HYDROCHLORIDE
     Indication: DIARRHOEA
     Dosage: 1 DF (TSP), 4X/DAY AS NEEDED
     Route: 048
  2. ELAVIL [Concomitant]
     Active Substance: AMITRIPTYLINE HYDROCHLORIDE
     Indication: SLEEP DISORDER
     Dosage: 25 MG, AS NEEDED NIGHTLY
  3. VITAMIN D3 [Concomitant]
     Active Substance: CHOLECALCIFEROL
     Dosage: 1000 IU, UNK
     Route: 048
  4. LEVOTHYROXINE [Concomitant]
     Active Substance: LEVOTHYROXINE
     Dosage: 125 ?G, DAILY (BEFORE BREAKFAST)
     Route: 048
  5. SUTENT [Suspect]
     Active Substance: SUNITINIB MALATE
     Dosage: 50 MG, DAILY
     Route: 048
  6. SUTENT [Suspect]
     Active Substance: SUNITINIB MALATE
     Indication: PANCREATIC NEUROENDOCRINE TUMOUR
     Dosage: 37.5 MG, CYCLIC
     Dates: start: 20141122
  7. SUTENT [Suspect]
     Active Substance: SUNITINIB MALATE
     Dosage: 50 MG, CYCLIC (SECOND CYCLE)
  8. COMPAZINE [Concomitant]
     Active Substance: PROCHLORPERAZINE MALEATE
     Dosage: 10 MG, AS NEEDED (EVERY 6 HOURS)
     Route: 048
  9. DILAUDID [Concomitant]
     Active Substance: HYDROMORPHONE HYDROCHLORIDE
     Dosage: 2 MG, EVERY 4 HRS AS NEEDED
     Route: 048
  10. SANDOSTATIN LAR DEPOT [Concomitant]
     Active Substance: OCTREOTIDE ACETATE
     Dosage: 20 MG, EVERY 28 DAYS
     Route: 030
  11. PEPCID [Concomitant]
     Active Substance: FAMOTIDINE
     Dosage: 20 MG, 2X/DAY
     Route: 048
  12. ADVIL [Concomitant]
     Active Substance: IBUPROFEN
     Dosage: 200 MG, AS NEEDED (EVERY 6 HOURS)
     Route: 048

REACTIONS (13)
  - Asthenia [Unknown]
  - Somnolence [Unknown]
  - Dizziness [Unknown]
  - Diarrhoea [Recovering/Resolving]
  - Pyrexia [Unknown]
  - Disease progression [Unknown]
  - Back disorder [Unknown]
  - Abdominal pain upper [Not Recovered/Not Resolved]
  - Hypophagia [Unknown]
  - Neuropathy peripheral [Unknown]
  - Fatigue [Unknown]
  - Pancreatic neuroendocrine tumour [Unknown]
  - Vomiting [Recovered/Resolved]

NARRATIVE: CASE EVENT DATE: 2015
